FAERS Safety Report 25448091 (Version 1)
Quarter: 2025Q2

REPORT INFORMATION
  Report Type: Spontaneous
  Country: US (occurrence: US)
  Receive Date: 20250617
  Receipt Date: 20250617
  Transmission Date: 20250717
  Serious: Yes (Hospitalization, Other)
  Sender: ELI LILLY AND COMPANY
  Company Number: US-ELI_LILLY_AND_COMPANY-US202506008469

PATIENT
  Age: 68 Year
  Sex: Male

DRUGS (4)
  1. MOUNJARO [Suspect]
     Active Substance: TIRZEPATIDE
     Indication: Neoplasm malignant
     Route: 065
     Dates: start: 202401, end: 20250602
  2. MOUNJARO [Suspect]
     Active Substance: TIRZEPATIDE
     Indication: Neoplasm malignant
     Route: 065
     Dates: start: 202401, end: 20250602
  3. MOUNJARO [Suspect]
     Active Substance: TIRZEPATIDE
     Indication: Neoplasm malignant
     Route: 065
     Dates: start: 202401, end: 20250602
  4. MOUNJARO [Suspect]
     Active Substance: TIRZEPATIDE
     Indication: Neoplasm malignant
     Route: 065
     Dates: start: 202401, end: 20250602

REACTIONS (6)
  - Gastrointestinal haemorrhage [Not Recovered/Not Resolved]
  - Haemoglobin decreased [Not Recovered/Not Resolved]
  - Extranodal marginal zone B-cell lymphoma (MALT type) [Unknown]
  - Coronary artery occlusion [Recovering/Resolving]
  - Dizziness [Not Recovered/Not Resolved]
  - Off label use [Unknown]

NARRATIVE: CASE EVENT DATE: 20250101
